FAERS Safety Report 24354609 (Version 1)
Quarter: 2024Q3

REPORT INFORMATION
  Report Type: Spontaneous
  Country: GB (occurrence: GB)
  Receive Date: 20240923
  Receipt Date: 20240923
  Transmission Date: 20241016
  Serious: Yes (Disabling)
  Sender: ELI LILLY AND CO
  Company Number: GB-MHRA-TPP7825014C2553323YC1725956096500

PATIENT
  Age: 49 Year
  Sex: Female
  Weight: 78 kg

DRUGS (6)
  1. MOUNJARO [Suspect]
     Active Substance: TIRZEPATIDE
     Indication: Product used for unknown indication
     Dosage: 2.5 MG, UNKNOWN
     Route: 065
  2. DIAZEPAM [Concomitant]
     Active Substance: DIAZEPAM
     Indication: Product used for unknown indication
     Dosage: TAKE ONE AS NEEDED TO BE TAKEN THREE TIMES DAIL...
     Dates: start: 20240910
  3. ESTRADIOL [Concomitant]
     Active Substance: ESTRADIOL
     Indication: Product used for unknown indication
     Dosage: APPLY TWO PUMPS ONCE DAILY
     Dates: start: 20230609, end: 20240617
  4. UTROGESTAN [Concomitant]
     Active Substance: PROGESTERONE
     Indication: Product used for unknown indication
     Dosage: ONE CAPSULE TO BE TAKEN DAILY AT BEDTIME ON DAY...
     Dates: start: 20230609, end: 20240617
  5. BISACODYL [Concomitant]
     Active Substance: BISACODYL
     Indication: Product used for unknown indication
     Dosage: 1-2 TO BE TAKEN EACH NIGHT WHEN REQUIRED FOR CO...
     Dates: start: 20230925, end: 20240617
  6. ACETAMINOPHEN\CODEINE PHOSPHATE [Concomitant]
     Active Substance: ACETAMINOPHEN\CODEINE PHOSPHATE
     Indication: Product used for unknown indication
     Dosage: ONE TO BE TAKEN FOUR TIMES A DAY AS REQUIRED
     Dates: start: 20240318, end: 20240617

REACTIONS (1)
  - Panic attack [Recovering/Resolving]
